FAERS Safety Report 9395281 (Version 1)
Quarter: 2013Q3

REPORT INFORMATION
  Report Type: Spontaneous
  Country: AU (occurrence: AU)
  Receive Date: 20130711
  Receipt Date: 20130711
  Transmission Date: 20140515
  Serious: Yes (Hospitalization)
  Sender: FDA-Public Use
  Company Number: AU-009507513-1307AUS004809

PATIENT
  Age: 59 Year
  Sex: Female

DRUGS (5)
  1. ROCURONIUM BROMIDE [Suspect]
     Dosage: UNK
  2. CEFAZOLIN SODIUM [Suspect]
  3. CHLORHEXIDINE ACETATE [Suspect]
  4. FENTANYL [Suspect]
  5. PROPOFOL [Suspect]

REACTIONS (1)
  - Circulatory collapse [Recovered/Resolved]
